FAERS Safety Report 10720697 (Version 7)
Quarter: 2015Q2

REPORT INFORMATION
  Report Type: Spontaneous
  Country: US (occurrence: US)
  Receive Date: 20150119
  Receipt Date: 20150427
  Transmission Date: 20150821
  Serious: Yes (Hospitalization, Other)
  Sender: FDA-Public Use
  Company Number: US-UNITED THERAPEUTICS-UNT-2014-009503

PATIENT
  Age: 72 Year
  Sex: Male
  Weight: 74.38 kg

DRUGS (15)
  1. ORENITRAM [Suspect]
     Active Substance: TREPROSTINIL
     Dosage: 4.875 MG, Q8H
     Route: 048
  2. ASPIRIN. [Concomitant]
     Active Substance: ASPIRIN
     Indication: PRODUCT USED FOR UNKNOWN INDICATION
  3. ORENITRAM [Suspect]
     Active Substance: TREPROSTINIL
     Indication: PULMONARY HYPERTENSION
     Dosage: 4.75 MG, TID
     Route: 048
  4. ORENITRAM [Suspect]
     Active Substance: TREPROSTINIL
     Dosage: 5.5 MG, Q8H
     Route: 048
  5. ORENITRAM [Suspect]
     Active Substance: TREPROSTINIL
     Dosage: 5.25 MG, TID
     Route: 048
  6. ORENITRAM [Suspect]
     Active Substance: TREPROSTINIL
     Dosage: 5 MG, TID
     Route: 048
  7. TYLENOL [Concomitant]
     Active Substance: ACETAMINOPHEN
     Indication: PRODUCT USED FOR UNKNOWN INDICATION
  8. ORENITRAM [Suspect]
     Active Substance: TREPROSTINIL
     Dosage: 5.5 MG, TID
     Route: 048
  9. VELETRI [Concomitant]
     Active Substance: EPOPROSTENOL
     Indication: PRODUCT USED FOR UNKNOWN INDICATION
  10. WARFARIN [Concomitant]
     Active Substance: WARFARIN
     Indication: PRODUCT USED FOR UNKNOWN INDICATION
  11. ORENITRAM [Suspect]
     Active Substance: TREPROSTINIL
     Indication: COR PULMONALE CHRONIC
     Dosage: 2.125 MG, Q8H
     Route: 048
     Dates: start: 20141010
  12. ORENITRAM [Suspect]
     Active Substance: TREPROSTINIL
     Dosage: 7 MG, TID
     Route: 048
     Dates: start: 20141124
  13. ORENITRAM [Suspect]
     Active Substance: TREPROSTINIL
     Dosage: 5.75 MG, Q8H
     Route: 048
  14. ORENITRAM [Suspect]
     Active Substance: TREPROSTINIL
     Dosage: 5.25 MG, TID
     Route: 048
  15. TRACLEER [Concomitant]
     Active Substance: BOSENTAN\BOSENTAN MONOHYDRATE
     Indication: PRODUCT USED FOR UNKNOWN INDICATION

REACTIONS (15)
  - Cardiac flutter [Unknown]
  - Vomiting [Recovered/Resolved]
  - Abdominal discomfort [Recovered/Resolved]
  - Flushing [Unknown]
  - Headache [Unknown]
  - Syncope [Unknown]
  - Atrial fibrillation [Unknown]
  - Diarrhoea [Recovered/Resolved]
  - Oxygen saturation decreased [Unknown]
  - Back pain [Unknown]
  - Constipation [Unknown]
  - Dyspnoea [Unknown]
  - Loss of consciousness [Unknown]
  - Pain in extremity [Unknown]
  - Nausea [Recovered/Resolved]

NARRATIVE: CASE EVENT DATE: 2014
